FAERS Safety Report 25839803 (Version 1)
Quarter: 2025Q3

REPORT INFORMATION
  Report Type: Spontaneous
  Country: JP (occurrence: JP)
  Receive Date: 20250924
  Receipt Date: 20250924
  Transmission Date: 20251020
  Serious: Yes (Death)
  Sender: MERCK SHARP & DOHME LLC
  Company Number: JP-PMDA-i2410006143001

PATIENT
  Age: 77 Year
  Sex: Male
  Weight: 84.3 kg

DRUGS (9)
  1. KEYTRUDA [Suspect]
     Active Substance: PEMBROLIZUMAB
     Indication: Ureteric cancer recurrent
     Route: 042
     Dates: start: 20241113, end: 20241113
  2. PADCEV [Suspect]
     Active Substance: ENFORTUMAB VEDOTIN-EJFV
     Indication: Ureteric cancer recurrent
     Route: 042
     Dates: start: 20241113, end: 20241120
  3. Heparinoid [Concomitant]
     Route: 065
     Dates: start: 20241113
  4. Myser [Concomitant]
     Route: 065
     Dates: start: 20241113
  5. LEVOFLOXACIN HEMIHYDRATE [Concomitant]
     Active Substance: LEVOFLOXACIN
     Route: 065
     Dates: start: 20241113, end: 20241120
  6. ACETAMINOPHEN [Concomitant]
     Active Substance: ACETAMINOPHEN
     Route: 065
     Dates: start: 20241113, end: 20241120
  7. GLYCYRON [Concomitant]
     Route: 065
     Dates: start: 20241120
  8. Novamin [Concomitant]
     Route: 065
     Dates: start: 20241125
  9. CELESTAMINE [Concomitant]
     Active Substance: BETAMETHASONE\DEXCHLORPHENIRAMINE MALEATE
     Route: 065
     Dates: start: 20241125

REACTIONS (1)
  - Toxic epidermal necrolysis [Fatal]

NARRATIVE: CASE EVENT DATE: 20241127
